FAERS Safety Report 7934159-6 (Version None)
Quarter: 2011Q4

REPORT INFORMATION
  Report Type: 
  Country: None (occurrence: None)
  Receive Date: 20111118
  Receipt Date: 20111116
  Transmission Date: 20120403
  Serious: Yes (Death, Hospitalization)
  Sender: FDA-Public Use
  Company Number: 2011SP048283

PATIENT
  Age: 64 Year
  Sex: Male

DRUGS (8)
  1. TEMODAL [Suspect]
     Indication: GLIOBLASTOMA MULTIFORME
     Dosage: 150 MG;QD;PO 120 MG;QD;PO
     Route: 048
     Dates: start: 20110920, end: 20110920
  2. TEMODAL [Suspect]
     Indication: GLIOBLASTOMA MULTIFORME
     Dosage: 150 MG;QD;PO 120 MG;QD;PO
     Route: 048
     Dates: start: 20110719, end: 20110723
  3. TEMODAL [Suspect]
  4. SOLDESAM /00016002/ [Concomitant]
  5. TEMODAL [Suspect]
  6. LANSOPRAZOLE [Concomitant]
  7. TEMODAL [Suspect]
  8. BACTRIM [Concomitant]

REACTIONS (2)
  - FEBRILE BONE MARROW APLASIA [None]
  - TOXICITY TO VARIOUS AGENTS [None]
